FAERS Safety Report 8245403-2 (Version None)
Quarter: 2012Q1

REPORT INFORMATION
  Report Type: 
  Country: None (occurrence: None)
  Receive Date: 20120329
  Receipt Date: 20120321
  Transmission Date: 20120608
  Serious: Yes (Hospitalization)
  Sender: FDA-Public Use
  Company Number: US-ASTRAZENECA-2010SE41119

PATIENT
  Age: 47 Year
  Sex: Male
  Weight: 86.2 kg

DRUGS (24)
  1. XOPENEX [Concomitant]
  2. LUNESTA [Concomitant]
     Indication: SLEEP DISORDER
     Route: 048
     Dates: start: 20080101
  3. PROAIR HFA [Concomitant]
     Indication: CHRONIC OBSTRUCTIVE PULMONARY DISEASE
     Dosage: PRN
     Route: 055
     Dates: start: 20090101
  4. TRIZANADINE [Concomitant]
     Indication: MIGRAINE
     Route: 048
     Dates: start: 20060101
  5. PULMICORT [Suspect]
     Indication: CHRONIC OBSTRUCTIVE PULMONARY DISEASE
     Route: 055
     Dates: start: 20080101
  6. SPIRIVA [Suspect]
     Indication: CHRONIC OBSTRUCTIVE PULMONARY DISEASE
     Dosage: ONCE
     Route: 055
     Dates: start: 20100101
  7. OXYCONTIN [Concomitant]
     Indication: MIGRAINE
     Route: 048
     Dates: start: 20090101
  8. NEXIUM [Suspect]
     Indication: GASTROOESOPHAGEAL REFLUX DISEASE
     Route: 048
     Dates: start: 20080101
  9. SEROQUEL [Suspect]
     Indication: DEPRESSION
     Route: 048
  10. SEROQUEL [Suspect]
     Indication: HEADACHE
     Route: 048
  11. SEROQUEL [Suspect]
     Route: 048
  12. CELEBREX [Concomitant]
     Indication: HEADACHE
     Route: 048
     Dates: start: 20000101
  13. NEXIUM [Suspect]
     Indication: DYSPEPSIA
     Route: 048
     Dates: start: 20080101
  14. XANAX [Concomitant]
     Indication: PANIC ATTACK
     Route: 048
     Dates: start: 20090101
  15. XANAX [Concomitant]
     Dosage: XR
     Route: 048
     Dates: start: 20090101
  16. OXYCODONE HCL [Concomitant]
  17. SYMBICORT [Suspect]
     Indication: CHRONIC OBSTRUCTIVE PULMONARY DISEASE
     Dosage: TWO TIMES A DAY
     Route: 055
  18. SEROQUEL [Suspect]
     Route: 048
     Dates: start: 20090101, end: 20110515
  19. IPRATROPIUM [Concomitant]
  20. SEROQUEL [Suspect]
     Route: 048
  21. SEROQUEL [Suspect]
     Route: 048
     Dates: start: 20090101, end: 20110515
  22. EFFEXOR XR [Concomitant]
  23. CELEBREX [Concomitant]
     Indication: FACIAL PAIN
     Route: 048
     Dates: start: 20000101
  24. ROXICODONE [Concomitant]
     Indication: MIGRAINE
     Route: 048
     Dates: start: 20090101

REACTIONS (7)
  - HEADACHE [None]
  - CHEST PAIN [None]
  - DYSPNOEA [None]
  - RASH [None]
  - OFF LABEL USE [None]
  - MIGRAINE [None]
  - PNEUMONIA [None]
